FAERS Safety Report 5943878-2 (Version None)
Quarter: 2008Q4

REPORT INFORMATION
  Report Type: 
  Country: None (occurrence: None)
  Receive Date: 20081106
  Receipt Date: 20081023
  Transmission Date: 20090506
  Serious: No
  Sender: FDA-Public Use
  Company Number: FI-WYE-G02508108

PATIENT
  Age: 74 Year
  Sex: Female

DRUGS (3)
  1. RELISTOR [Suspect]
     Indication: CONSTIPATION
     Dosage: 8 MG EVERY 1 TOT
     Route: 058
     Dates: start: 20081015, end: 20081015
  2. RELISTOR [Suspect]
     Dosage: 8 MG EVERY 1 TOT
     Route: 058
     Dates: start: 20081017, end: 20081017
  3. OXYCODONE HCL [Concomitant]
     Route: 058

REACTIONS (5)
  - ABDOMINAL PAIN [None]
  - DEHYDRATION [None]
  - DIARRHOEA [None]
  - HYPOVOLAEMIA [None]
  - NAUSEA [None]
